FAERS Safety Report 19631684 (Version 1)
Quarter: 2021Q3

REPORT INFORMATION
  Report Type: Spontaneous
  Country: US (occurrence: US)
  Receive Date: 20210728
  Receipt Date: 20210728
  Transmission Date: 20211014
  Serious: No
  Sender: FDA-Public Use
  Company Number: US-ROCHE-2653554

PATIENT
  Age: 44 Year
  Sex: Female

DRUGS (2)
  1. XELODA [Suspect]
     Active Substance: CAPECITABINE
     Indication: PRODUCT USED FOR UNKNOWN INDICATION
     Dosage: ONGOING: YES
     Route: 048
     Dates: start: 202004
  2. XELODA [Suspect]
     Active Substance: CAPECITABINE
     Route: 048
     Dates: start: 202004

REACTIONS (13)
  - Visual impairment [Unknown]
  - Diplopia [Unknown]
  - Vision blurred [Unknown]
  - Chest pain [Unknown]
  - Diarrhoea [Unknown]
  - Decreased appetite [Unknown]
  - Nausea [Unknown]
  - Insomnia [Unknown]
  - Hot flush [Unknown]
  - Pain [Unknown]
  - Arthralgia [Unknown]
  - Arthralgia [Unknown]
  - Lacrimation increased [Unknown]

NARRATIVE: CASE EVENT DATE: 20200504
